FAERS Safety Report 21364419 (Version 1)
Quarter: 2022Q3

REPORT INFORMATION
  Report Type: Report from Study
  Country: US (occurrence: None)
  Receive Date: 20220922
  Receipt Date: 20220922
  Transmission Date: 20221026
  Serious: Yes (Life-Threatening)
  Sender: FDA-Public Use
  Company Number: US-Merck KGaA-9050632

PATIENT
  Age: 40 Year
  Sex: Male
  Weight: 93 kg

DRUGS (1)
  1. REBIF [Suspect]
     Active Substance: INTERFERON BETA-1A
     Indication: Multiple sclerosis
     Dosage: RECEIVED ONLY ONE DOSE OF REBIF
     Route: 058
     Dates: start: 20181102, end: 20181102

REACTIONS (2)
  - Pneumothorax [Recovered/Resolved]
  - Drug hypersensitivity [Recovered/Resolved]

NARRATIVE: CASE EVENT DATE: 20181102
